FAERS Safety Report 19880046 (Version 2)
Quarter: 2022Q2

REPORT INFORMATION
  Report Type: Spontaneous
  Country: US (occurrence: US)
  Receive Date: 20210924
  Receipt Date: 20220504
  Transmission Date: 20220721
  Serious: No
  Sender: FDA-Public Use
  Company Number: US-PFIZER INC-202101213215

PATIENT
  Age: 43 Year
  Sex: Female

DRUGS (1)
  1. PREGABALIN [Suspect]
     Active Substance: PREGABALIN
     Dosage: UNK

REACTIONS (5)
  - Drug ineffective [Unknown]
  - Malaise [Unknown]
  - Thermal burn [Unknown]
  - Pain [Unknown]
  - Anxiety [Unknown]
